FAERS Safety Report 23625862 (Version 3)
Quarter: 2024Q2

REPORT INFORMATION
  Report Type: Spontaneous
  Country: US (occurrence: US)
  Receive Date: 20240313
  Receipt Date: 20240424
  Transmission Date: 20240716
  Serious: Yes (Other)
  Sender: FDA-Public Use
  Company Number: US-BEH-2024169317

PATIENT
  Age: 73 Year
  Sex: Female

DRUGS (15)
  1. HIZENTRA [Suspect]
     Active Substance: HUMAN IMMUNOGLOBULIN G
     Indication: Polyarthritis
     Dosage: 14 GRAM, QOW
     Route: 058
     Dates: start: 20210117
  2. OXYCODONE HYDROCHLORIDE [Concomitant]
     Active Substance: OXYCODONE HYDROCHLORIDE
  3. ASPIRIN [Concomitant]
     Active Substance: ASPIRIN
  4. BIOTIN [Concomitant]
     Active Substance: BIOTIN
  5. CALCIUM [Concomitant]
     Active Substance: CALCIUM
  6. CEPHALEXIN [Concomitant]
     Active Substance: CEPHALEXIN
  7. CLONAZEPAM [Concomitant]
     Active Substance: CLONAZEPAM
  8. LAMOTRIGINE [Concomitant]
     Active Substance: LAMOTRIGINE
  9. LAMOTRIGINE [Concomitant]
     Active Substance: LAMOTRIGINE
  10. METHENAMINE [Concomitant]
     Active Substance: METHENAMINE
  11. VITAMINS NOS [Concomitant]
     Active Substance: VITAMINS
  12. OMEPRAZOLE [Concomitant]
     Active Substance: OMEPRAZOLE
  13. PREDNISONE [Concomitant]
     Active Substance: PREDNISONE
  14. VITAMIN D3 [Concomitant]
     Active Substance: CHOLECALCIFEROL
  15. XANAX [Concomitant]
     Active Substance: ALPRAZOLAM

REACTIONS (18)
  - Hip fracture [Unknown]
  - Off label use [Unknown]
  - Fall [Unknown]
  - Limb asymmetry [Unknown]
  - Balance disorder [Unknown]
  - Gait inability [Unknown]
  - Anxiety [Unknown]
  - Depressed mood [Unknown]
  - Somnolence [Recovered/Resolved]
  - Feeling cold [Recovered/Resolved]
  - Therapy interrupted [Unknown]
  - Feeling cold [Recovered/Resolved]
  - Incorrect drug administration rate [Recovered/Resolved]
  - Somnolence [Recovered/Resolved]
  - Incorrect drug administration rate [Recovered/Resolved]
  - Headache [Recovered/Resolved]
  - Incorrect drug administration rate [Recovered/Resolved]
  - Muscular weakness [Recovered/Resolved]

NARRATIVE: CASE EVENT DATE: 20230901
